FAERS Safety Report 26032000 (Version 1)
Quarter: 2025Q4

REPORT INFORMATION
  Report Type: Spontaneous
  Country: JP (occurrence: JP)
  Receive Date: 20251112
  Receipt Date: 20251112
  Transmission Date: 20260118
  Serious: Yes (Death)
  Sender: ASTELLAS
  Company Number: JP-ASTELLAS-2025-AER-062001

PATIENT
  Age: 6 Year
  Sex: Male

DRUGS (5)
  1. GILTERITINIB [Suspect]
     Active Substance: GILTERITINIB
     Indication: Acute myeloid leukaemia
     Route: 050
  2. GILTERITINIB [Suspect]
     Active Substance: GILTERITINIB
     Route: 050
  3. DASATINIB [Suspect]
     Active Substance: DASATINIB
     Indication: Acute myeloid leukaemia
     Route: 050
  4. DASATINIB [Suspect]
     Active Substance: DASATINIB
     Route: 050
  5. AZACITIDINE [Concomitant]
     Active Substance: AZACITIDINE
     Indication: Acute myeloid leukaemia
     Route: 050

REACTIONS (3)
  - Pulmonary hypertension [Fatal]
  - Off label use [Unknown]
  - Product use issue [Unknown]
